FAERS Safety Report 5917450-4 (Version None)
Quarter: 2008Q4

REPORT INFORMATION
  Report Type: 
  Country: None (occurrence: None)
  Receive Date: 20081014
  Receipt Date: 20081006
  Transmission Date: 20090506
  Serious: Yes (Death)
  Sender: FDA-Public Use
  Company Number: FR-AVENTIS-200813526FR

PATIENT
  Age: 61 Year
  Sex: Male

DRUGS (4)
  1. FLAGYL [Suspect]
     Dates: start: 20080603
  2. REVLIMID [Suspect]
     Route: 048
     Dates: start: 20080519
  3. NEURONTIN [Suspect]
     Route: 048
     Dates: start: 20080401
  4. ROCEPHIN [Suspect]
     Dates: start: 20080603

REACTIONS (2)
  - SEPTIC SHOCK [None]
  - TOXIC EPIDERMAL NECROLYSIS [None]
